FAERS Safety Report 6997382-3 (Version None)
Quarter: 2010Q3

REPORT INFORMATION
  Report Type: 
  Country: None (occurrence: None)
  Receive Date: 20100918
  Receipt Date: 20091012
  Transmission Date: 20110219
  Serious: No
  Sender: FDA-Public Use
  Company Number: US-WYE-H11588209

PATIENT
  Sex: Female

DRUGS (6)
  1. PRISTIQ [Suspect]
     Indication: DEPRESSION
     Route: 048
     Dates: start: 20091005
  2. KLONOPIN [Concomitant]
  3. SOMA [Concomitant]
  4. BUSPAR [Concomitant]
  5. LAMOTRIGINE [Concomitant]
  6. AMBIEN [Concomitant]

REACTIONS (1)
  - NAUSEA [None]
